FAERS Safety Report 6232057-X (Version None)
Quarter: 2009Q2

REPORT INFORMATION
  Report Type: 
  Country: None (occurrence: None)
  Receive Date: 20090616
  Receipt Date: 20090605
  Transmission Date: 20091009
  Serious: Yes (Death, Hospitalization)
  Sender: FDA-Public Use
  Company Number: DK-WYE-G03807609

PATIENT

DRUGS (1)
  1. TORISEL [Suspect]

REACTIONS (2)
  - ASCITES [None]
  - ELECTROLYTE IMBALANCE [None]
